FAERS Safety Report 4598791-2 (Version None)
Quarter: 2005Q1

REPORT INFORMATION
  Report Type: 
  Country: None (occurrence: None)
  Receive Date: 20050302
  Receipt Date: 20050216
  Transmission Date: 20050727
  Serious: Yes (Hospitalization)
  Sender: FDA-Public Use
  Company Number: 2005BI003595

PATIENT
  Age: 52 Year
  Sex: Female

DRUGS (1)
  1. AVONEX [Suspect]
     Indication: MULTIPLE SCLEROSIS
     Dosage: 30 UG;QW; IM
     Route: 030
     Dates: start: 20030907

REACTIONS (4)
  - MYOCARDIAL INFARCTION [None]
  - POSTOPERATIVE WOUND COMPLICATION [None]
  - WOUND EVISCERATION [None]
  - WOUND NECROSIS [None]
